FAERS Safety Report 8238832-4 (Version None)
Quarter: 2012Q1

REPORT INFORMATION
  Report Type: 
  Country: None (occurrence: None)
  Receive Date: 20120327
  Receipt Date: 20120320
  Transmission Date: 20120608
  Serious: Yes (Other)
  Sender: FDA-Public Use
  Company Number: BR-PFIZER INC-2009290881

PATIENT
  Age: 58 Year
  Sex: Female
  Weight: 77 kg

DRUGS (11)
  1. LIPITOR [Suspect]
     Indication: BLOOD TRIGLYCERIDES INCREASED
     Dosage: UNK
     Route: 048
     Dates: start: 20100101
  2. DIOVAN [Concomitant]
     Dosage: UNK
  3. LIPITOR [Suspect]
     Indication: BLOOD CHOLESTEROL INCREASED
     Dosage: 10 MG, DAILY
     Route: 048
     Dates: start: 20091026
  4. GALVUS [Concomitant]
     Dosage: UNK
  5. EXODUS [Concomitant]
     Dosage: UNK
  6. LIPITOR [Suspect]
     Dosage: UNK
     Route: 048
  7. SIMVASTATIN [Suspect]
     Dosage: UNK
  8. INDAPAMIDE [Concomitant]
     Dosage: UNK
  9. DIAMICRON [Concomitant]
     Dosage: UNK
  10. METFORMIN [Concomitant]
     Dosage: UNK
  11. DIOVAN HCT [Concomitant]
     Dosage: UNK

REACTIONS (11)
  - NERVOUSNESS [None]
  - MALAISE [None]
  - ISCHAEMIC STROKE [None]
  - HAEMORRHAGIC STROKE [None]
  - ANEURYSM [None]
  - FATIGUE [None]
  - FEELING ABNORMAL [None]
  - CEREBROVASCULAR ACCIDENT [None]
  - PAIN [None]
  - DECREASED APPETITE [None]
  - BLOOD GLUCOSE FLUCTUATION [None]
